FAERS Safety Report 24770003 (Version 1)
Quarter: 2024Q4

REPORT INFORMATION
  Report Type: Spontaneous
  Country: FI (occurrence: FI)
  Receive Date: 20241224
  Receipt Date: 20241224
  Transmission Date: 20250114
  Serious: Yes (Other)
  Sender: BRISTOL-MYERS SQUIBB COMPANY
  Company Number: FI-TEVA-VS-3274772

PATIENT
  Age: 72 Year
  Sex: Female

DRUGS (1)
  1. APIXABAN [Suspect]
     Active Substance: APIXABAN
     Indication: Mitral valve incompetence
     Dosage: RATIOPHARM

REACTIONS (3)
  - Arrhythmia [Recovered/Resolved]
  - Urine output decreased [Recovered/Resolved]
  - Off label use [Unknown]
